FAERS Safety Report 5205731-1 (Version None)
Quarter: 2007Q1

REPORT INFORMATION
  Report Type: 
  Country: None (occurrence: None)
  Receive Date: 20070105
  Receipt Date: 20070105
  Transmission Date: 20070707
  Serious: Yes (Hospitalization)
  Sender: FDA-Public Use
  Company Number: None

PATIENT
  Age: 84 Year
  Sex: Male
  Weight: 61 kg

DRUGS (8)
  1. PREDNISONE [Suspect]
     Indication: GOUT
     Dosage: 3 MG ONCE DAILY PO
     Route: 048
     Dates: start: 20060202, end: 20060707
  2. PREDNISONE [Suspect]
     Indication: OSTEOARTHRITIS
     Dosage: 3 MG ONCE DAILY PO
     Route: 048
     Dates: start: 20060202, end: 20060707
  3. DICLOFENAC SODIUM [Suspect]
     Indication: OSTEOARTHRITIS
     Dosage: 75 MG ONCE DAILY PO
     Route: 048
     Dates: start: 20041230, end: 20060707
  4. MISOPROSTOL [Concomitant]
  5. OMEPRAZOLE [Concomitant]
  6. SIMVASTATIN [Concomitant]
  7. COLCHICINE [Concomitant]
  8. DOCUSATE [Concomitant]

REACTIONS (8)
  - BACK PAIN [None]
  - DIARRHOEA [None]
  - FEELING DRUNK [None]
  - GASTRIC ULCER [None]
  - GASTROINTESTINAL HAEMORRHAGE [None]
  - HEADACHE [None]
  - MUSCULOSKELETAL PAIN [None]
  - NAUSEA [None]
